FAERS Safety Report 6577579-7 (Version None)
Quarter: 2010Q1

REPORT INFORMATION
  Report Type: 
  Country: None (occurrence: None)
  Receive Date: 20100211
  Receipt Date: 20100111
  Transmission Date: 20100710
  Serious: No
  Sender: FDA-Public Use
  Company Number: US-BAYER-201010717BCC

PATIENT
  Age: 86 Year
  Sex: Male
  Weight: 93 kg

DRUGS (2)
  1. ALEVE (CAPLET) [Suspect]
     Indication: ARTHRITIS
     Dosage: UNIT DOSE: 220 MG
     Route: 048
     Dates: start: 20091201
  2. IBUPROFEN [Concomitant]
     Route: 065

REACTIONS (1)
  - ARTHRITIS [None]
